FAERS Safety Report 7049257-1 (Version None)
Quarter: 2010Q4

REPORT INFORMATION
  Report Type: 
  Country: None (occurrence: None)
  Receive Date: 20101018
  Receipt Date: 20101006
  Transmission Date: 20110411
  Serious: Yes (Other)
  Sender: FDA-Public Use
  Company Number: JP-SANOFI-AVENTIS-2010SA052258

PATIENT
  Age: 60 Year
  Sex: Female
  Weight: 68 kg

DRUGS (13)
  1. ELPLAT [Suspect]
     Indication: COLON CANCER
     Route: 041
     Dates: start: 20090910, end: 20090910
  2. ELPLAT [Suspect]
     Route: 041
     Dates: start: 20100625, end: 20100625
  3. ELPLAT [Suspect]
     Route: 041
     Dates: start: 20100723, end: 20100723
  4. CALCIUM LEVOFOLINATE [Concomitant]
     Indication: COLON CANCER
     Route: 041
     Dates: start: 20090910, end: 20090910
  5. CALCIUM LEVOFOLINATE [Concomitant]
     Route: 041
     Dates: start: 20100723, end: 20100723
  6. FLUOROURACIL [Concomitant]
     Indication: COLON CANCER
     Route: 040
     Dates: start: 20090910, end: 20090910
  7. FLUOROURACIL [Concomitant]
     Route: 041
     Dates: start: 20100910, end: 20100910
  8. FLUOROURACIL [Concomitant]
     Route: 040
     Dates: start: 20100723, end: 20100723
  9. FLUOROURACIL [Concomitant]
     Route: 041
     Dates: start: 20100723, end: 20100723
  10. FLUOROURACIL [Concomitant]
     Route: 040
     Dates: start: 20100625, end: 20100625
  11. FLUOROURACIL [Concomitant]
     Route: 041
     Dates: start: 20100625, end: 20100625
  12. SEROTONE [Concomitant]
     Indication: PREMEDICATION
     Route: 041
     Dates: start: 20090910, end: 20100723
  13. DECADRON [Concomitant]
     Indication: PREMEDICATION
     Route: 041
     Dates: start: 20090910, end: 20100723

REACTIONS (3)
  - GINGIVAL BLEEDING [None]
  - HAEMORRHAGE URINARY TRACT [None]
  - VITREOUS HAEMORRHAGE [None]
